FAERS Safety Report 7517421-0 (Version None)
Quarter: 2011Q2

REPORT INFORMATION
  Report Type: 
  Country: None (occurrence: None)
  Receive Date: 20110601
  Receipt Date: 20110525
  Transmission Date: 20111010
  Serious: Yes (Death)
  Sender: FDA-Public Use
  Company Number: JP-JNJFOC-20110506750

PATIENT
  Age: 5 Decade
  Sex: Male

DRUGS (4)
  1. RISPERDAL [Suspect]
     Indication: DELIRIUM
     Dosage: AT BEDTIME
     Route: 048
     Dates: start: 20110414, end: 20110414
  2. RISPERDAL [Suspect]
     Indication: SCHIZOPHRENIA
     Dosage: AT BEDTIME
     Route: 048
     Dates: start: 20110414, end: 20110414
  3. RISPERDAL [Suspect]
     Route: 048
     Dates: start: 20110315, end: 20110418
  4. RISPERDAL [Suspect]
     Route: 048
     Dates: start: 20110315, end: 20110418

REACTIONS (2)
  - INAPPROPRIATE ANTIDIURETIC HORMONE SECRETION [None]
  - HYPONATRAEMIA [None]
